FAERS Safety Report 16073026 (Version 4)
Quarter: 2019Q2

REPORT INFORMATION
  Report Type: Spontaneous
  Country: LB (occurrence: LB)
  Receive Date: 20190314
  Receipt Date: 20190614
  Transmission Date: 20190711
  Serious: Yes (Death, Hospitalization, Other)
  Sender: FDA-Public Use
  Company Number: LB-BRISTOL-MYERS SQUIBB COMPANY-BMS-2019-022982

PATIENT
  Age: 73 Year
  Sex: Male

DRUGS (1)
  1. OPDIVO [Suspect]
     Active Substance: NIVOLUMAB
     Indication: SQUAMOUS CELL CARCINOMA
     Dosage: 240 MILLIGRAM
     Route: 042

REACTIONS (5)
  - General physical health deterioration [Unknown]
  - Intervertebral disc protrusion [Unknown]
  - Malignant neoplasm progression [Fatal]
  - Sepsis [Fatal]
  - Urinary tract infection bacterial [Unknown]

NARRATIVE: CASE EVENT DATE: 20190322
